FAERS Safety Report 15993705 (Version 1)
Quarter: 2019Q1

REPORT INFORMATION
  Report Type: Spontaneous
  Country: CN (occurrence: CN)
  Receive Date: 20190222
  Receipt Date: 20190222
  Transmission Date: 20190418
  Serious: Yes (Other)
  Sender: FDA-Public Use
  Company Number: CN-BAXTER-2019BAX004032

PATIENT
  Age: 58 Year
  Sex: Male

DRUGS (8)
  1. 20% MANNITOL INJECTION [Suspect]
     Active Substance: MANNITOL
     Route: 041
     Dates: start: 201712
  2. SODIUM CHLORIDE. [Concomitant]
     Active Substance: SODIUM CHLORIDE
     Dosage: WITH OMEPRAZOLE
     Route: 041
     Dates: start: 201712
  3. LORNOXICAM [Concomitant]
     Active Substance: LORNOXICAM
     Indication: PRODUCT USED FOR UNKNOWN INDICATION
     Route: 041
     Dates: start: 201712
  4. MECOBALAMIN [Concomitant]
     Active Substance: METHYLCOBALAMIN
     Indication: PRODUCT USED FOR UNKNOWN INDICATION
     Route: 041
     Dates: start: 201712
  5. SODIUM CHLORIDE. [Concomitant]
     Active Substance: SODIUM CHLORIDE
     Dosage: WITH MECOBALAMIN
     Route: 041
     Dates: start: 201712
  6. OMEPRAZOLE. [Concomitant]
     Active Substance: OMEPRAZOLE
     Indication: PRODUCT USED FOR UNKNOWN INDICATION
     Route: 041
     Dates: start: 201712
  7. 20% MANNITOL INJECTION [Suspect]
     Active Substance: MANNITOL
     Indication: PRODUCT USED FOR UNKNOWN INDICATION
     Route: 041
     Dates: start: 20171222
  8. SODIUM CHLORIDE. [Concomitant]
     Active Substance: SODIUM CHLORIDE
     Indication: PRODUCT USED FOR UNKNOWN INDICATION
     Dosage: WITH LORNOXICAM
     Route: 041
     Dates: start: 201712

REACTIONS (2)
  - Cold sweat [Recovered/Resolved]
  - Chest discomfort [Recovered/Resolved]
